FAERS Safety Report 7417157-0 (Version None)
Quarter: 2011Q2

REPORT INFORMATION
  Report Type: 
  Country: None (occurrence: None)
  Receive Date: 20110415
  Receipt Date: 20110317
  Transmission Date: 20111010
  Serious: Yes (Death, Hospitalization, Other)
  Sender: FDA-Public Use
  Company Number: US-BAYER-201039648NA

PATIENT
  Age: 28 Year
  Sex: Female
  Weight: 68.027 kg

DRUGS (9)
  1. ZYPREXA [Concomitant]
     Indication: DEPRESSION
  2. PAROXETINE [Concomitant]
     Indication: DEPRESSION
  3. YAZ [Suspect]
     Indication: PRODUCT USED FOR UNKNOWN INDICATION
     Route: 048
     Dates: start: 20070901, end: 20090801
  4. CLONAZEPAM [Concomitant]
     Indication: PANIC DISORDER
  5. PAROXETINE [Concomitant]
     Indication: ANXIETY
  6. KLONOPIN [Concomitant]
  7. ZOLOFT [Concomitant]
  8. TRAZODONE [Concomitant]
     Indication: INSOMNIA
  9. TRAZODONE [Concomitant]
     Indication: DEPRESSION

REACTIONS (20)
  - COMPLETED SUICIDE [None]
  - FEELING GUILTY [None]
  - RENAL FAILURE [None]
  - INSOMNIA [None]
  - ABDOMINAL PAIN [None]
  - PANIC DISORDER [None]
  - BACK PAIN [None]
  - NAUSEA [None]
  - HEART RATE INCREASED [None]
  - DEPRESSION [None]
  - GASTROINTESTINAL PAIN [None]
  - BLOOD PRESSURE FLUCTUATION [None]
  - HYPERTENSION [None]
  - ANXIETY [None]
  - TUBULOINTERSTITIAL NEPHRITIS [None]
  - ANAEMIA [None]
  - MENTAL DISORDER [None]
  - MIGRAINE [None]
  - PANIC ATTACK [None]
  - PALPITATIONS [None]
